FAERS Safety Report 15587173 (Version 1)
Quarter: 2018Q4

REPORT INFORMATION
  Report Type: Spontaneous
  Country: US (occurrence: US)
  Receive Date: 20181106
  Receipt Date: 20181106
  Transmission Date: 20190205
  Serious: Yes (Life-Threatening)
  Sender: FDA-Public Use
  Company Number: None

PATIENT
  Age: 47 Year
  Sex: Female
  Weight: 81 kg

DRUGS (1)
  1. VIBERZI [Suspect]
     Active Substance: ELUXADOLINE
     Indication: IRRITABLE BOWEL SYNDROME
     Dosage: ?          QUANTITY:24 TABLET(S);?
     Route: 048
     Dates: start: 20181101, end: 20181102

REACTIONS (2)
  - Pancreatic disorder [None]
  - Product prescribing issue [None]

NARRATIVE: CASE EVENT DATE: 20181101
